FAERS Safety Report 12991115 (Version 1)
Quarter: 2016Q4

REPORT INFORMATION
  Report Type: Spontaneous
  Country: US (occurrence: US)
  Receive Date: 20161130
  Receipt Date: 20161130
  Transmission Date: 20170207
  Serious: Yes (Other)
  Sender: FDA-Public Use
  Company Number: None

PATIENT
  Age: 45 Year
  Sex: Female
  Weight: 44.4 kg

DRUGS (8)
  1. VALPROIC ACID. [Concomitant]
     Active Substance: VALPROIC ACID
  2. DIPHENHYDRAMINE. [Concomitant]
     Active Substance: DIPHENHYDRAMINE
  3. DOCUSATE [Concomitant]
     Active Substance: DOCUSATE
  4. MIRALAX [Concomitant]
     Active Substance: POLYETHYLENE GLYCOL 3350
  5. AUGMENTIN [Suspect]
     Active Substance: AMOXICILLIN\CLAVULANATE POTASSIUM
     Indication: ANTIBIOTIC PROPHYLAXIS
     Route: 048
     Dates: start: 20160802, end: 20160809
  6. CALCIUM [Concomitant]
     Active Substance: CALCIUM
  7. VITAMIN D [Concomitant]
     Active Substance: CHOLECALCIFEROL
  8. L-THYROXINE [Concomitant]
     Active Substance: LEVOTHYROXINE

REACTIONS (9)
  - Rash [None]
  - Pyrexia [None]
  - Decreased appetite [None]
  - Pain [None]
  - Excoriation [None]
  - Candida infection [None]
  - Diarrhoea [None]
  - Oesophageal candidiasis [None]
  - Vulvovaginal candidiasis [None]

NARRATIVE: CASE EVENT DATE: 20160813
